FAERS Safety Report 4723298-9 (Version None)
Quarter: 2005Q3

REPORT INFORMATION
  Report Type: 
  Country: None (occurrence: None)
  Receive Date: 20050725
  Receipt Date: 20040921
  Transmission Date: 20060218
  Serious: No
  Sender: FDA-Public Use
  Company Number: US-BRISTOL-MYERS SQUIBB COMPANY-12708897

PATIENT
  Age: 46 Year
  Sex: Female
  Weight: 54 kg

DRUGS (1)
  1. DOVONEX [Suspect]
     Indication: PSORIASIS
     Dosage: 60 GRAM TUBE; 1/4 TO 1/2 TSP DAILY AS NEEDED FOR ^AT LEAST 5 YEARS^
     Route: 061

REACTIONS (1)
  - THERAPEUTIC RESPONSE DELAYED [None]
